FAERS Safety Report 9275620 (Version 1)
Quarter: 2013Q2

REPORT INFORMATION
  Report Type: Report from Study
  Country: US (occurrence: US)
  Receive Date: 20130507
  Receipt Date: 20130507
  Transmission Date: 20140414
  Serious: Yes (Hospitalization)
  Sender: FDA-Public Use
  Company Number: US-JNJFOC-20130416634

PATIENT
  Age: 15 Year
  Sex: Male
  Weight: 117.7 kg

DRUGS (3)
  1. REMICADE [Suspect]
     Indication: CROHN^S DISEASE
     Route: 042
     Dates: start: 20110902, end: 20120801
  2. 5-ASA [Concomitant]
     Route: 048
  3. HUMIRA [Concomitant]
     Route: 065
     Dates: start: 20120816

REACTIONS (1)
  - Pilonidal cyst [Recovered/Resolved]
